FAERS Safety Report 14794111 (Version 1)
Quarter: 2018Q2

REPORT INFORMATION
  Report Type: Spontaneous
  Country: GB (occurrence: GB)
  Receive Date: 20180423
  Receipt Date: 20180423
  Transmission Date: 20180711
  Serious: Yes (Life-Threatening, Hospitalization, Other)
  Sender: FDA-Public Use
  Company Number: GB-TEVA-2018-GB-884468

PATIENT
  Age: 77 Year
  Sex: Female
  Weight: 72 kg

DRUGS (4)
  1. RAMIPRIL. [Suspect]
     Active Substance: RAMIPRIL
     Dosage: SHORT COURSE
     Route: 065
  2. FUROSEMIDE. [Suspect]
     Active Substance: FUROSEMIDE
     Dosage: SHORT COURSE
     Route: 065
  3. CLARITHROMYCIN. [Suspect]
     Active Substance: CLARITHROMYCIN
     Indication: CELLULITIS
     Dosage: 1000 MILLIGRAM DAILY;
     Route: 048
     Dates: start: 20180117, end: 20180212
  4. SIMVASTATIN. [Interacting]
     Active Substance: SIMVASTATIN
     Indication: PRIMARY HYPERCHOLESTEROLAEMIA
     Dosage: 40 MILLIGRAM DAILY; AT NIGHT
     Route: 048
     Dates: start: 20120918, end: 20180212

REACTIONS (7)
  - Liver injury [Not Recovered/Not Resolved]
  - Acute kidney injury [Not Recovered/Not Resolved]
  - Rhabdomyolysis [Unknown]
  - Labelled drug-drug interaction medication error [Unknown]
  - Hyperkalaemia [Unknown]
  - Transaminases increased [Not Recovered/Not Resolved]
  - Acidosis [Not Recovered/Not Resolved]

NARRATIVE: CASE EVENT DATE: 20180116
